FAERS Safety Report 8442741-5 (Version None)
Quarter: 2012Q2

REPORT INFORMATION
  Report Type: 
  Country: None (occurrence: None)
  Receive Date: 20120615
  Receipt Date: 20120608
  Transmission Date: 20120825
  Serious: Yes (Hospitalization)
  Sender: FDA-Public Use
  Company Number: US-US-EMD SERONO, INC.-7129438

PATIENT
  Sex: Female

DRUGS (1)
  1. REBIF [Suspect]
     Indication: MULTIPLE SCLEROSIS
     Route: 058
     Dates: start: 20120409

REACTIONS (7)
  - MUSCULAR WEAKNESS [None]
  - CONTUSION [None]
  - HEADACHE [None]
  - INJECTION SITE HAEMATOMA [None]
  - FALL [None]
  - LIGAMENT RUPTURE [None]
  - MULTIPLE SCLEROSIS RELAPSE [None]
